FAERS Safety Report 9728088 (Version 3)
Quarter: 2013Q4

REPORT INFORMATION
  Report Type: Spontaneous
  Country: DE (occurrence: DE)
  Receive Date: 20131204
  Receipt Date: 20131230
  Transmission Date: 20140711
  Serious: Yes (Other)
  Sender: FDA-Public Use
  Company Number: PHHY2013DE140226

PATIENT
  Sex: Female

DRUGS (2)
  1. GILENYA [Suspect]
     Indication: MULTIPLE SCLEROSIS
     Dosage: 0.5 MG, QD
     Route: 048
     Dates: start: 20111014
  2. GABAPENTIN [Concomitant]
     Indication: PARAESTHESIA
     Dosage: 300 MG, QD
     Route: 048
     Dates: start: 20130816, end: 20131125

REACTIONS (1)
  - Basal cell carcinoma [Recovered/Resolved]
